FAERS Safety Report 10022023 (Version 1)
Quarter: 2013Q4

REPORT INFORMATION
  Report Type: Spontaneous
  Country: US (occurrence: None)
  Receive Date: 20131205
  Receipt Date: 20131205
  Transmission Date: 20140711
  Serious: Yes (Other)
  Sender: FDA-Public Use
  Company Number: M-13-055

PATIENT
  Age: 65 Year
  Sex: Female

DRUGS (8)
  1. LEVOTHYROXINE [Suspect]
     Indication: HYPOTHYROIDISM
     Dosage: 75 MCG - MORNING
  2. OMPRAZOLE [Concomitant]
  3. TEMAZEPAM [Concomitant]
  4. MULTIVITAMINS [Concomitant]
  5. CRANBERRY SUPPLEMENT [Concomitant]
  6. POTASSIUM [Concomitant]
  7. CALCIUM [Concomitant]
  8. ISOFLAVONES SOY [Concomitant]

REACTIONS (11)
  - Drug ineffective [None]
  - Dizziness [None]
  - Chills [None]
  - Skin burning sensation [None]
  - Lethargy [None]
  - Paraesthesia [None]
  - Discomfort [None]
  - Thyroid function test abnormal [None]
  - Feeling abnormal [None]
  - Malaise [None]
  - Activities of daily living impaired [None]
